FAERS Safety Report 8601109-9 (Version None)
Quarter: 2012Q3

REPORT INFORMATION
  Report Type: 
  Country: None (occurrence: None)
  Receive Date: 20120817
  Receipt Date: 20120814
  Transmission Date: 20120928
  Serious: Yes (Death, Other)
  Sender: FDA-Public Use
  Company Number: PHHY2012CA070404

PATIENT
  Age: 36 Year
  Sex: Female

DRUGS (3)
  1. AZATHIOPRINE SODIUM [Suspect]
     Indication: IMMUNOSUPPRESSION
  2. TACROLIMUS [Suspect]
     Indication: IMMUNOSUPPRESSION
  3. PREDNISONE TAB [Suspect]
     Indication: IMMUNOSUPPRESSION

REACTIONS (8)
  - BACTERAEMIA [None]
  - PETROSITIS [None]
  - PYREXIA [None]
  - MASTOIDITIS [None]
  - HEADACHE [None]
  - STAPHYLOCOCCAL INFECTION [None]
  - SINUSITIS [None]
  - OTITIS MEDIA [None]
